FAERS Safety Report 13180606 (Version 2)
Quarter: 2017Q1

REPORT INFORMATION
  Report Type: Report from Study
  Country: CA (occurrence: CA)
  Receive Date: 20170202
  Receipt Date: 20170227
  Transmission Date: 20170428
  Serious: Yes (Other)
  Sender: FDA-Public Use
  Company Number: CA-OTSUKA-2016_014047

PATIENT
  Age: 65 Year
  Sex: Female
  Weight: 45.35 kg

DRUGS (5)
  1. HYDROMORPHONE [Concomitant]
     Active Substance: HYDROMORPHONE
     Indication: RENAL PAIN
     Dosage: 6 MG, BID
     Route: 065
  2. TOLVAPTAN [Suspect]
     Active Substance: TOLVAPTAN
     Dosage: UNK, QD (IN EVENING)
     Route: 048
     Dates: end: 20160613
  3. TOLVAPTAN [Suspect]
     Active Substance: TOLVAPTAN
     Indication: CONGENITAL CYSTIC KIDNEY DISEASE
     Dosage: UNK, QD (IN MORNING)
     Route: 048
     Dates: end: 20160613
  4. TOLVAPTAN [Suspect]
     Active Substance: TOLVAPTAN
     Dosage: 15 MG, QD (IN THE EVENING)
     Route: 048
     Dates: start: 20160618
  5. TOLVAPTAN [Suspect]
     Active Substance: TOLVAPTAN
     Dosage: 45 MG, QD (IN THE MORNING)
     Route: 048
     Dates: start: 20160618

REACTIONS (7)
  - Drug dose omission [Unknown]
  - Stress [Not Recovered/Not Resolved]
  - Weight decreased [Not Recovered/Not Resolved]
  - Diplopia [Not Recovered/Not Resolved]
  - Hyperthyroidism [Not Recovered/Not Resolved]
  - Blood pressure increased [Recovered/Resolved]
  - Nodule [Unknown]

NARRATIVE: CASE EVENT DATE: 20161102
